FAERS Safety Report 5128727-7 (Version None)
Quarter: 2006Q4

REPORT INFORMATION
  Report Type: 
  Country: None (occurrence: None)
  Receive Date: 20061011
  Receipt Date: 20061006
  Transmission Date: 20070319
  Serious: Yes (Disabling)
  Sender: FDA-Public Use
  Company Number: TPA2006A00530

PATIENT
  Age: 62 Year
  Sex: Female
  Weight: 120.2032 kg

DRUGS (4)
  1. ACTOS [Suspect]
     Indication: DIABETES MELLITUS
     Dosage: PER ORAL
     Route: 048
  2. EXENATIDE (ALL OTHER THERAPEUTIC PRODUCTS) (0.25 MILLIGRAM/MILLILITERS [Suspect]
     Indication: DIABETES MELLITUS NON-INSULIN-DEPENDENT
     Dosage: SEE IMAGE
     Route: 058
     Dates: start: 20050801, end: 20050901
  3. EXENATIDE (ALL OTHER THERAPEUTIC PRODUCTS) (0.25 MILLIGRAM/MILLILITERS [Suspect]
     Indication: DIABETES MELLITUS NON-INSULIN-DEPENDENT
     Dosage: SEE IMAGE
     Route: 058
     Dates: start: 20050901
  4. AMARYL [Suspect]

REACTIONS (2)
  - ABASIA [None]
  - WEIGHT INCREASED [None]
